FAERS Safety Report 12300290 (Version 1)
Quarter: 2016Q2

REPORT INFORMATION
  Report Type: Report from Study
  Country: TR (occurrence: TR)
  Receive Date: 20160425
  Receipt Date: 20160425
  Transmission Date: 20160815
  Serious: Yes (Death, Hospitalization, Other)
  Sender: FDA-Public Use
  Company Number: TR-SA-2016SA077705

PATIENT
  Age: 46 Year
  Sex: Male
  Weight: 73 kg

DRUGS (6)
  1. LASIX [Concomitant]
     Active Substance: FUROSEMIDE
  2. MABCAMPATH [Suspect]
     Active Substance: ALEMTUZUMAB
     Indication: PROLYMPHOCYTIC LEUKAEMIA
     Route: 065
     Dates: start: 20141225, end: 20141225
  3. PERFALGAN [Concomitant]
     Active Substance: ACETAMINOPHEN
     Indication: PREMEDICATION
  4. DEXAMETHASONE. [Concomitant]
     Active Substance: DEXAMETHASONE
     Indication: PREMEDICATION
  5. ZOMETA [Concomitant]
     Active Substance: ZOLEDRONIC ACID
     Indication: OEDEMA
  6. VINCRISTINE [Concomitant]
     Active Substance: VINCRISTINE
     Dates: start: 20141224

REACTIONS (14)
  - Hypotension [Unknown]
  - C-reactive protein increased [Unknown]
  - Renal cyst [Unknown]
  - Pyrexia [Unknown]
  - Pleural effusion [Unknown]
  - Oliguria [Unknown]
  - Tachycardia [Unknown]
  - Tachypnoea [Unknown]
  - White blood cell count decreased [Unknown]
  - Hypoxia [Not Recovered/Not Resolved]
  - Shock [Not Recovered/Not Resolved]
  - Hepatic enzyme increased [Unknown]
  - Death [Fatal]
  - Agitation [Unknown]

NARRATIVE: CASE EVENT DATE: 201412
